FAERS Safety Report 7314299-5 (Version None)
Quarter: 2011Q1

REPORT INFORMATION
  Report Type: 
  Country: None (occurrence: None)
  Receive Date: 20110225
  Receipt Date: 20100709
  Transmission Date: 20110831
  Serious: No
  Sender: FDA-Public Use
  Company Number: US-MYLANLABS-2010S1012463

PATIENT
  Age: 16 Year
  Sex: Male
  Weight: 70.31 kg

DRUGS (1)
  1. AMNESTEEM [Suspect]
     Indication: ACNE
     Route: 048

REACTIONS (2)
  - DRUG SCREEN FALSE POSITIVE [None]
  - HEPATIC ENZYME INCREASED [None]
